FAERS Safety Report 20779559 (Version 1)
Quarter: 2022Q2

REPORT INFORMATION
  Report Type: Spontaneous
  Country: FR (occurrence: None)
  Receive Date: 20220503
  Receipt Date: 20220503
  Transmission Date: 20220721
  Serious: Yes (Hospitalization, Other)
  Sender: FDA-Public Use
  Company Number: 2022A169986

PATIENT
  Sex: Male

DRUGS (2)
  1. DAPAGLIFLOZIN [Suspect]
     Active Substance: DAPAGLIFLOZIN
     Indication: Diabetes mellitus
     Dosage: 10.0MG UNKNOWN
     Route: 048
  2. XYLTOPHY [Concomitant]
     Route: 065

REACTIONS (3)
  - Urinary tract infection [Not Recovered/Not Resolved]
  - Acquired hydrocele [Not Recovered/Not Resolved]
  - Prostatic disorder [Not Recovered/Not Resolved]
